FAERS Safety Report 16944718 (Version 1)
Quarter: 2019Q4

REPORT INFORMATION
  Report Type: Spontaneous
  Country: US (occurrence: US)
  Receive Date: 20191022
  Receipt Date: 20191022
  Transmission Date: 20200122
  Serious: No
  Sender: FDA-Public Use
  Company Number: US-MYLANLABS-2019M1095428

PATIENT
  Sex: Female
  Weight: 59 kg

DRUGS (1)
  1. NORETHINDRONE ACETATE AND ETHINYL ESTRADIOL [Suspect]
     Active Substance: ETHINYL ESTRADIOL\NORETHINDRONE ACETATE
     Indication: HORMONE LEVEL ABNORMAL
     Dosage: 1 MILLIGRAM, QD

REACTIONS (1)
  - Off label use [Not Recovered/Not Resolved]
